FAERS Safety Report 10557554 (Version 1)
Quarter: 2014Q4

REPORT INFORMATION
  Report Type: Spontaneous
  Country: US (occurrence: None)
  Receive Date: 20141030
  Receipt Date: 20141030
  Transmission Date: 20150529
  Serious: Yes (Other)
  Sender: FDA-Public Use
  Company Number: None

PATIENT
  Age: 70 Year
  Sex: Male

DRUGS (1)
  1. HEPARIN [Suspect]
     Active Substance: HEPARIN SODIUM
     Indication: ANTICOAGULANT THERAPY
     Dates: start: 20140929, end: 20140929

REACTIONS (4)
  - Pupil fixed [None]
  - Brain death [None]
  - Thrombosis in device [None]
  - Cerebral infarction [None]

NARRATIVE: CASE EVENT DATE: 20140929
